FAERS Safety Report 9857445 (Version 2)
Quarter: 2014Q1

REPORT INFORMATION
  Report Type: Report from Study
  Country: GB (occurrence: GB)
  Receive Date: 20140131
  Receipt Date: 20140307
  Transmission Date: 20141002
  Serious: Yes (Death, Other)
  Sender: FDA-Public Use
  Company Number: GB-ROCHE-1336567

PATIENT
  Sex: Male

DRUGS (9)
  1. RITUXIMAB [Suspect]
     Indication: RHEUMATOID ARTHRITIS
     Route: 065
     Dates: start: 20100527
  2. METHOTREXATE [Concomitant]
     Route: 065
     Dates: end: 201301
  3. TRAMADOL [Concomitant]
  4. LISINOPRIL [Concomitant]
  5. LANSOPRAZOLE [Concomitant]
  6. FOLIC ACID [Concomitant]
  7. MELOXICAM [Concomitant]
  8. ASPIRIN [Concomitant]
  9. SIMVASTATINE [Concomitant]

REACTIONS (2)
  - Cholecystitis infective [Fatal]
  - Cholangitis [Unknown]
